FAERS Safety Report 4399728-1 (Version None)
Quarter: 2004Q3

REPORT INFORMATION
  Report Type: 
  Country: None (occurrence: None)
  Receive Date: 20040714
  Receipt Date: 20040628
  Transmission Date: 20050211
  Serious: Yes (Hospitalization, Other)
  Sender: FDA-Public Use
  Company Number: JP_040503161

PATIENT
  Age: 18 Year
  Sex: Male
  Weight: 70 kg

DRUGS (3)
  1. ZYPREXA [Suspect]
     Indication: SCHIZOPHRENIA
     Dosage: 10 MG DAY
     Dates: start: 20040317, end: 20040409
  2. RISPERDAL [Concomitant]
  3. SILECE (FLUNITRAZEPAM) [Concomitant]

REACTIONS (7)
  - HEPATIC STEATOSIS [None]
  - HIGH DENSITY LIPOPROTEIN DECREASED [None]
  - HYPERPHAGIA [None]
  - HYPERTRIGLYCERIDAEMIA [None]
  - INCREASED APPETITE [None]
  - LIPOPROTEIN DEFICIENCY [None]
  - WEIGHT INCREASED [None]
